FAERS Safety Report 12848766 (Version 1)
Quarter: 2016Q4

REPORT INFORMATION
  Report Type: Spontaneous
  Country: US (occurrence: US)
  Receive Date: 20161014
  Receipt Date: 20161014
  Transmission Date: 20170207
  Serious: No
  Sender: FDA-Public Use
  Company Number: US-JNJFOC-20160802261

PATIENT
  Sex: Female
  Weight: 81.65 kg

DRUGS (2)
  1. BENADRYL [Suspect]
     Active Substance: DIPHENHYDRAMINE HYDROCHLORIDE
     Indication: DERMATITIS CONTACT
     Dosage: OCCASSIONAL; VERY RARE TO TAKE MORE THAN ONE DOSE OF TWO TABLETS.
     Route: 048
  2. TYLENOL EXTRA STRENGTH [Interacting]
     Active Substance: ACETAMINOPHEN
     Indication: FATIGUE
     Dosage: OCCASSIONALLY EVERY FOUR HOURS (RARELY AS NEEDED)
     Route: 048

REACTIONS (5)
  - Fatigue [Recovered/Resolved]
  - Product use issue [Recovered/Resolved]
  - Somnolence [Recovered/Resolved]
  - Drug interaction [Recovered/Resolved]
  - Off label use [Recovered/Resolved]
